FAERS Safety Report 13497970 (Version 4)
Quarter: 2017Q2

REPORT INFORMATION
  Report Type: Spontaneous
  Country: DE (occurrence: DE)
  Receive Date: 20170428
  Receipt Date: 20170614
  Transmission Date: 20170830
  Serious: Yes (Hospitalization, Other)
  Sender: FDA-Public Use
  Company Number: DE-IPSEN BIOPHARMACEUTICALS, INC.-2017-03365

PATIENT
  Age: 59 Year
  Sex: Male
  Weight: 59 kg

DRUGS (45)
  1. PANTOZOL [Concomitant]
     Active Substance: PANTOPRAZOLE SODIUM
     Indication: PROPHYLAXIS
     Route: 048
     Dates: start: 20160301
  2. DEKRISTOL [Concomitant]
     Active Substance: CHOLECALCIFEROL
     Indication: VITAMIN D DEFICIENCY
     Route: 048
     Dates: start: 20160801
  3. CANDESARTAN. [Concomitant]
     Active Substance: CANDESARTAN
     Indication: HYPERTENSION
     Route: 048
     Dates: start: 20160324
  4. NOREPINEPHRINE. [Concomitant]
     Active Substance: NOREPINEPHRINE
     Indication: PROPHYLAXIS
     Route: 042
     Dates: start: 20160302, end: 20160305
  5. SULFENTANIL [Concomitant]
     Dosage: 50 MCG/ML
     Route: 042
     Dates: start: 20160303, end: 20160304
  6. METAMIZOL [Concomitant]
     Active Substance: METAMIZOLE SODIUM
     Indication: ABDOMINAL PAIN
     Route: 048
     Dates: start: 20150408
  7. KALINOR [Concomitant]
     Active Substance: POTASSIUM CITRATE
     Indication: PROPHYLAXIS
     Route: 048
     Dates: start: 20160331
  8. LERCANIDIPIN [Concomitant]
     Active Substance: LERCANIDIPINE
     Route: 048
     Dates: start: 20160808
  9. ALLOPURINOL. [Concomitant]
     Active Substance: ALLOPURINOL
     Indication: HYPERURICAEMIA
     Route: 048
     Dates: start: 20160330
  10. PROPOFOL. [Concomitant]
     Active Substance: PROPOFOL
     Indication: ANAESTHESIA
     Route: 042
     Dates: start: 20160303, end: 20160304
  11. OCTREOTIDE. [Concomitant]
     Active Substance: OCTREOTIDE
     Indication: NEUROENDOCRINE TUMOUR
  12. DICLOFENAC [Concomitant]
     Active Substance: DICLOFENAC
     Indication: ABDOMINAL PAIN
     Route: 048
     Dates: start: 20141021
  13. SYREA [Concomitant]
     Active Substance: HYDROXYUREA
     Indication: THROMBOCYTOSIS
     Route: 048
     Dates: start: 20160420
  14. CLEXANE [Concomitant]
     Active Substance: ENOXAPARIN SODIUM
     Indication: PROPHYLAXIS
     Route: 058
     Dates: start: 20160310, end: 20160324
  15. PHENPROCOUMON [Concomitant]
     Active Substance: PHENPROCOUMON
     Indication: CEREBRAL ISCHAEMIA
     Route: 048
     Dates: start: 20160408
  16. LX1606 [Concomitant]
     Indication: CARCINOID SYNDROME
     Route: 048
     Dates: start: 20150629, end: 20161214
  17. LX1606 [Concomitant]
     Route: 048
     Dates: start: 20161216, end: 20170409
  18. BUDESOMID [Concomitant]
     Indication: ASTHMA
     Route: 055
     Dates: start: 1998
  19. TIOTROPIUM BROMIDE [Concomitant]
     Active Substance: TIOTROPIUM BROMIDE
     Indication: ASTHMA
     Route: 055
     Dates: start: 1998
  20. TICAGRELOR [Concomitant]
     Active Substance: TICAGRELOR
     Indication: PROPHYLAXIS
     Route: 048
     Dates: start: 20141123
  21. FUROSEMID [Concomitant]
     Active Substance: FUROSEMIDE
     Indication: OEDEMA
     Route: 042
     Dates: start: 20160303, end: 20160305
  22. SOMATOSTATIN [Concomitant]
     Active Substance: SOMATOSTATIN
     Indication: NEUROENDOCRINE TUMOUR
     Route: 042
     Dates: start: 20160302, end: 20160304
  23. DIPIDOLOR [Concomitant]
     Active Substance: PIRITRAMIDE
     Indication: PROPHYLAXIS
     Route: 042
     Dates: start: 20160303, end: 20160312
  24. NAROPIN [Concomitant]
     Active Substance: ROPIVACAINE HYDROCHLORIDE
     Indication: PROPHYLAXIS
     Route: 042
     Dates: start: 20160303, end: 20160309
  25. IRON [Concomitant]
     Active Substance: IRON
     Indication: ABDOMINAL PAIN
     Route: 048
     Dates: start: 20141021
  26. TAMSULOSIN [Concomitant]
     Active Substance: TAMSULOSIN
     Indication: BENIGN PROSTATIC HYPERPLASIA
     Route: 048
     Dates: start: 201009
  27. LERCANIDIPIN [Concomitant]
     Active Substance: LERCANIDIPINE
     Indication: HYPERTENSION
     Route: 048
     Dates: start: 20150729, end: 20160303
  28. SOMATULINE AUTOGEL 120MG [Suspect]
     Active Substance: LANREOTIDE ACETATE
     Indication: NEUROENDOCRINE TUMOUR
     Dosage: 120 MG
     Route: 058
     Dates: start: 201604
  29. DOXAZOSIN [Suspect]
     Active Substance: DOXAZOSIN\DOXAZOSIN MESYLATE
     Indication: HYPERTENSION
     Route: 048
     Dates: start: 20160801
  30. VITAMIN B [Concomitant]
     Active Substance: VITAMIN B
     Indication: PROPHYLAXIS
     Route: 048
     Dates: start: 201007, end: 20160301
  31. XOMOLIX [Concomitant]
     Active Substance: DROPERIDOL
     Indication: PROPHYLAXIS
     Route: 042
     Dates: start: 20160302, end: 20160302
  32. KONAKION [Concomitant]
     Active Substance: PHYTONADIONE
     Indication: PROPHYLAXIS
     Route: 042
     Dates: start: 20160302, end: 20160306
  33. ATROVENT [Suspect]
     Active Substance: IPRATROPIUM BROMIDE
     Indication: PRODUCT USED FOR UNKNOWN INDICATION
  34. LX1606 [Concomitant]
     Route: 048
     Dates: start: 20170411
  35. FENOTEROL [Concomitant]
     Active Substance: FENOTEROL
     Indication: ASTHMA
     Route: 055
     Dates: start: 198508
  36. METHYLPREDNISOLON [Concomitant]
     Active Substance: METHYLPREDNISOLONE
     Indication: ASTHMA
     Dosage: 2-4 MG
     Route: 048
     Dates: start: 20160330
  37. MONTELUKAST [Concomitant]
     Active Substance: MONTELUKAST SODIUM
     Indication: ASTHMA
     Route: 048
     Dates: start: 2002
  38. ACETYLSALICYLACID [Concomitant]
     Indication: PROPHYLAXIS
     Route: 048
     Dates: start: 20141124
  39. BUTYLSCOPOLAMIN [Concomitant]
     Indication: ABDOMINAL PAIN
     Route: 048
     Dates: start: 20150401
  40. NITRIFURANTPOIN [Concomitant]
     Indication: HAEMATURIA
     Route: 048
     Dates: start: 20150825
  41. VITAMIN C [Concomitant]
     Active Substance: ASCORBIC ACID
     Indication: PROPHYLAXIS
     Route: 048
     Dates: start: 201007, end: 20160301
  42. RINGERACETAT [Concomitant]
     Indication: PROPHYLAXIS
     Route: 042
     Dates: start: 20160302, end: 20160313
  43. KEVATRIL [Concomitant]
     Active Substance: GRANISETRON HYDROCHLORIDE
     Indication: PROPHYLAXIS
     Route: 042
     Dates: start: 20160302, end: 20160302
  44. GLUCOSE [Concomitant]
     Active Substance: DEXTROSE
     Indication: NUTRITIONAL SUPPLEMENTATION
     Dosage: 40G/100 ML
     Route: 042
     Dates: start: 20160303, end: 20160311
  45. TOREM [Concomitant]
     Active Substance: TORSEMIDE
     Dosage: 20MG/4ML
     Route: 042
     Dates: start: 20160303, end: 20160307

REACTIONS (15)
  - Pneumonia [Recovered/Resolved]
  - Pulmonary oedema [Recovered/Resolved]
  - Pleural effusion [Unknown]
  - Vitamin D deficiency [Unknown]
  - Cardiomegaly [Unknown]
  - Chronic obstructive pulmonary disease [Unknown]
  - Congestive cardiomyopathy [Unknown]
  - Urinary retention [Unknown]
  - Respiratory failure [Unknown]
  - Cardiac failure [Unknown]
  - Ejection fraction decreased [Unknown]
  - Cerebral ischaemia [Unknown]
  - Pneumocystis jirovecii infection [Unknown]
  - Pulmonary congestion [Unknown]
  - Intra-abdominal haemorrhage [Unknown]

NARRATIVE: CASE EVENT DATE: 2016
